FAERS Safety Report 21847203 (Version 1)
Quarter: 2023Q1

REPORT INFORMATION
  Report Type: Spontaneous
  Country: US (occurrence: US)
  Receive Date: 20230111
  Receipt Date: 20230111
  Transmission Date: 20230417
  Serious: No
  Sender: FDA-Public Use
  Company Number: US-BRISTOL-MYERS SQUIBB COMPANY-2023-004164

PATIENT
  Age: 61 Year
  Sex: Female

DRUGS (1)
  1. ORENCIA [Suspect]
     Active Substance: ABATACEPT
     Indication: Rheumatoid arthritis
     Dosage: FREQUENCY: INFUSE 750 MG INTRAVENOUSLY AT WEEK 4 AND THEN EVERY 4 WEEKS THEREAFTER.
     Route: 042
     Dates: start: 202211

REACTIONS (1)
  - Drug ineffective [Unknown]
